FAERS Safety Report 10194811 (Version 1)
Quarter: 2014Q2

REPORT INFORMATION
  Report Type: Spontaneous
  Country: US (occurrence: US)
  Receive Date: 20140526
  Receipt Date: 20140526
  Transmission Date: 20141212
  Serious: No
  Sender: FDA-Public Use
  Company Number: US-009507513-1405USA006591

PATIENT
  Sex: Female

DRUGS (4)
  1. ZOCOR [Suspect]
     Indication: BLOOD CHOLESTEROL INCREASED
     Dosage: 40 MG, QD
     Route: 048
     Dates: start: 2004, end: 2013
  2. PRAVASTATIN SODIUM [Suspect]
  3. OMEPRAZOLE [Concomitant]
  4. SYNTHYROID [Concomitant]
     Dosage: UNK
     Dates: end: 2013

REACTIONS (1)
  - Pain in extremity [Not Recovered/Not Resolved]
